FAERS Safety Report 25127300 (Version 1)
Quarter: 2025Q1

REPORT INFORMATION
  Report Type: Spontaneous
  Country: US (occurrence: US)
  Receive Date: 20250327
  Receipt Date: 20250327
  Transmission Date: 20250409
  Serious: Yes (Hospitalization)
  Sender: MERCK SHARP & DOHME LLC
  Company Number: US-009507513-2268780

PATIENT
  Sex: Female

DRUGS (6)
  1. SOTATERCEPT [Suspect]
     Active Substance: SOTATERCEPT
     Dosage: FREQUENCY: EVERY THREE WEEKS
     Route: 058
  2. SOTATERCEPT [Suspect]
     Active Substance: SOTATERCEPT
  3. SOTATERCEPT [Suspect]
     Active Substance: SOTATERCEPT
  4. SOTATERCEPT [Suspect]
     Active Substance: SOTATERCEPT
  5. UPTRAVI [Concomitant]
     Active Substance: SELEXIPAG
  6. LETAIRIS [Concomitant]
     Active Substance: AMBRISENTAN

REACTIONS (6)
  - Hospitalisation [Unknown]
  - Atrial fibrillation [Unknown]
  - Dizziness [Unknown]
  - Therapy interrupted [Unknown]
  - Presyncope [Unknown]
  - Haemoptysis [Unknown]
